FAERS Safety Report 20165892 (Version 1)
Quarter: 2021Q4

REPORT INFORMATION
  Report Type: Spontaneous
  Country: US (occurrence: US)
  Receive Date: 20211209
  Receipt Date: 20211209
  Transmission Date: 20220303
  Serious: Yes (Hospitalization)
  Sender: FDA-Public Use
  Company Number: US-MYLANLABS-2021M1090653

PATIENT
  Age: 70 Year
  Sex: Male

DRUGS (1)
  1. NAPROXEN [Suspect]
     Active Substance: NAPROXEN
     Indication: Back pain
     Dosage: UNK, QD
     Route: 065

REACTIONS (3)
  - Gastritis bacterial [Recovered/Resolved]
  - Haematemesis [Recovering/Resolving]
  - Oesophagitis [Recovering/Resolving]
